FAERS Safety Report 14207123 (Version 1)
Quarter: 2017Q4

REPORT INFORMATION
  Report Type: Spontaneous
  Country: AU (occurrence: AU)
  Receive Date: 20171121
  Receipt Date: 20171121
  Transmission Date: 20180321
  Serious: Yes (Hospitalization)
  Sender: FDA-Public Use
  Company Number: AU-BAXTER-2017BAX036989

PATIENT
  Age: 15 Year
  Sex: Female

DRUGS (15)
  1. STERILE WATER [Suspect]
     Active Substance: WATER
     Dosage: COMPOUNDED WITH CEFOXITIN
     Route: 042
     Dates: start: 201710, end: 20171021
  2. STERILE WATER [Suspect]
     Active Substance: WATER
     Indication: MEDICATION DILUTION
     Dosage: COMPOUNDED WITH CEFOXITIN
     Route: 042
     Dates: start: 20171011
  3. CEFOXITIN [Suspect]
     Active Substance: CEFOXITIN SODIUM
     Dosage: COMPOUNDED WITH WATER FOR INJECTION
     Route: 042
     Dates: start: 201710, end: 20171021
  4. NASONEX [Concomitant]
     Active Substance: MOMETASONE FUROATE
     Indication: PRODUCT USED FOR UNKNOWN INDICATION
     Dosage: ON LONG TERM USE, INTRANASAL
     Route: 045
  5. PULMOZYME [Concomitant]
     Active Substance: DORNASE ALFA
     Indication: PRODUCT USED FOR UNKNOWN INDICATION
     Dosage: ON LONG TERM USE
     Route: 055
  6. CEFOXITIN [Suspect]
     Active Substance: CEFOXITIN SODIUM
     Indication: MYCOBACTERIAL INFECTION
     Dosage: FREQUENCY: QDS
     Route: 042
     Dates: start: 20170928
  7. CEFOXITIN [Suspect]
     Active Substance: CEFOXITIN SODIUM
     Dosage: TDS, COMPOUNDED WITH WATER FOR INJECTION
     Route: 042
     Dates: start: 20171011
  8. CLOFAZIMINE [Suspect]
     Active Substance: CLOFAZIMINE
     Indication: PRODUCT USED FOR UNKNOWN INDICATION
     Route: 048
     Dates: start: 20171009
  9. VITABDECK [Concomitant]
     Indication: PRODUCT USED FOR UNKNOWN INDICATION
     Dosage: 2 TABLETS DAILY, ON LONG TERM USE
     Route: 048
  10. CREON [Concomitant]
     Active Substance: PANCRELIPASE AMYLASE\PANCRELIPASE LIPASE\PANCRELIPASE PROTEASE
     Indication: PRODUCT USED FOR UNKNOWN INDICATION
     Dosage: CREON 10000, VARIES (DISCREPANTLY REPORTED AS VARIOUS) WITH FOOD, LONG TERM USE
     Route: 048
  11. HYPERTONIC SALINE [Concomitant]
     Active Substance: SODIUM CHLORIDE
     Indication: PRODUCT USED FOR UNKNOWN INDICATION
     Dosage: BD,ON LONG TERM USE
     Route: 055
  12. AMIKACIN [Suspect]
     Active Substance: AMIKACIN
     Indication: PRODUCT USED FOR UNKNOWN INDICATION
     Route: 042
     Dates: start: 20171002
  13. SALT [Concomitant]
     Active Substance: SODIUM CHLORIDE
     Indication: PRODUCT USED FOR UNKNOWN INDICATION
     Dosage: TABLETS, DAILY IN THE AFTERNOON, ON LONG TERM USE
     Route: 048
  14. AZITHROMYCIN ANHYDROUS. [Suspect]
     Active Substance: AZITHROMYCIN ANHYDROUS
     Indication: PRODUCT USED FOR UNKNOWN INDICATION
     Route: 048
     Dates: start: 20171005
  15. SERETIDE [Concomitant]
     Active Substance: FLUTICASONE PROPIONATE\SALMETEROL XINAFOATE
     Indication: PRODUCT USED FOR UNKNOWN INDICATION
     Dosage: DOSE: 2 PUFFS, ON LONG TERM USE
     Route: 055

REACTIONS (3)
  - Liver function test increased [Recovered/Resolved]
  - Rash [Recovered/Resolved]
  - Pyrexia [Recovered/Resolved]

NARRATIVE: CASE EVENT DATE: 201710
